FAERS Safety Report 4384112-7 (Version None)
Quarter: 2004Q2

REPORT INFORMATION
  Report Type: 
  Country: None (occurrence: None)
  Receive Date: 20040621
  Receipt Date: 20040421
  Transmission Date: 20050107
  Serious: Yes (Other)
  Sender: FDA-Public Use
  Company Number: 2003188921US

PATIENT
  Age: 9 Year
  Sex: Female

DRUGS (1)
  1. DEPO-PROVERA [Suspect]
     Indication: CONTRACEPTION
     Dosage: SINGLE INJECTION
     Dates: start: 19940105, end: 19940105

REACTIONS (4)
  - ANGER [None]
  - CONVULSION [None]
  - DRUG EXPOSURE DURING PREGNANCY [None]
  - ELECTROENCEPHALOGRAM ABNORMAL [None]
